FAERS Safety Report 13609572 (Version 1)
Quarter: 2017Q2

REPORT INFORMATION
  Report Type: Spontaneous
  Country: BR (occurrence: BR)
  Receive Date: 20170602
  Receipt Date: 20170602
  Transmission Date: 20170830
  Serious: Yes (Other)
  Sender: FDA-Public Use
  Company Number: PHHY2017BR077382

PATIENT
  Age: 13 Year
  Sex: Male
  Weight: 23.9 kg

DRUGS (1)
  1. AMOXICILLIN+CLAVULANATE [Suspect]
     Active Substance: AMOXICILLIN\CLAVULANATE POTASSIUM
     Indication: PRODUCT USED FOR UNKNOWN INDICATION
     Dosage: 250 MG, TID
     Route: 065

REACTIONS (2)
  - Chromaturia [Unknown]
  - Urinary tract infection [Unknown]
